FAERS Safety Report 4273131-7 (Version None)
Quarter: 2004Q1

REPORT INFORMATION
  Report Type: 
  Country: None (occurrence: None)
  Receive Date: 20040116
  Receipt Date: 20030930
  Transmission Date: 20041129
  Serious: Yes (Hospitalization)
  Sender: FDA-Public Use
  Company Number: JP-GLAXOSMITHKLINE-B0310767A

PATIENT
  Age: 61 Year
  Sex: Male

DRUGS (11)
  1. PAXIL [Suspect]
     Indication: PANIC DISORDER
     Route: 048
     Dates: start: 20030814, end: 20030922
  2. BIPERIDEN HYDROCHLORIDE [Suspect]
     Indication: ANXIETY DISORDER
     Dates: end: 20030922
  3. CHLORPROMAZINE HCL [Suspect]
     Indication: ANXIETY DISORDER
     Dates: end: 20030922
  4. ALPRAZOLAM [Concomitant]
     Indication: ANXIETY DISORDER
     Route: 048
  5. ETIZOLAM [Concomitant]
     Indication: ANXIETY
     Route: 048
  6. QUAZEPAM [Concomitant]
     Indication: INSOMNIA
  7. SENNOSIDE [Concomitant]
     Indication: CONSTIPATION
     Route: 048
  8. ZOPICLONE [Concomitant]
     Indication: INSOMNIA
     Route: 048
  9. TRIAZOLAM [Concomitant]
     Indication: INSOMNIA
     Route: 048
  10. LORAZEPAM [Concomitant]
     Route: 048
  11. FLUNITRAZEPAM [Concomitant]

REACTIONS (7)
  - ALANINE AMINOTRANSFERASE INCREASED [None]
  - BLOOD ALKALINE PHOSPHATASE INCREASED [None]
  - BLOOD BILIRUBIN INCREASED [None]
  - DRUG INTERACTION [None]
  - GAMMA-GLUTAMYLTRANSFERASE INCREASED [None]
  - HEPATIC FUNCTION ABNORMAL [None]
  - HEPATITIS C [None]
